FAERS Safety Report 6236654-7 (Version None)
Quarter: 2009Q2

REPORT INFORMATION
  Report Type: 
  Country: None (occurrence: None)
  Receive Date: 20090619
  Receipt Date: 20050317
  Transmission Date: 20091009
  Serious: No
  Sender: FDA-Public Use
  Company Number: US-ASTRAZENECA-2008UW26485

PATIENT
  Sex: Male

DRUGS (3)
  1. ATACAND [Suspect]
     Indication: HYPERTENSION
     Route: 048
  2. TOPROL-XL [Concomitant]
     Route: 048
  3. NORVASC [Concomitant]

REACTIONS (1)
  - SPERM COUNT DECREASED [None]
